FAERS Safety Report 13139778 (Version 10)
Quarter: 2018Q2

REPORT INFORMATION
  Report Type: Report from Study
  Country: JP (occurrence: JP)
  Receive Date: 20170123
  Receipt Date: 20180515
  Transmission Date: 20180711
  Serious: Yes (Hospitalization, Other)
  Sender: FDA-Public Use
  Company Number: JP-ACTELION-A-CH2016-137003

PATIENT
  Age: 27 Year
  Sex: Male
  Weight: 54 kg

DRUGS (49)
  1. TRACLEER [Suspect]
     Active Substance: BOSENTAN
     Indication: PULMONARY ARTERIAL HYPERTENSION
     Dosage: 125 MG, BID
     Route: 048
     Dates: start: 20150418, end: 20150617
  2. EPOPROSTENOL ACT [Suspect]
     Active Substance: EPOPROSTENOL
     Dosage: 0.79 NG/KG, PER MIN
     Route: 042
  3. EPOPROSTENOL ACT [Suspect]
     Active Substance: EPOPROSTENOL
     Dosage: 26.5 NG/KG, PER MIN
     Route: 042
     Dates: start: 20170406
  4. EPOPROSTENOL ACT [Suspect]
     Active Substance: EPOPROSTENOL
     Dosage: 29.8 NG/KG, PER MIN
     Route: 042
     Dates: start: 20170222
  5. UPTRAVI [Suspect]
     Active Substance: SELEXIPAG
     Dosage: 0.4 MG, BID
     Route: 048
     Dates: start: 20170525
  6. PREDONINE [Suspect]
     Active Substance: PREDNISOLONE
     Dosage: 15 MG, OD
     Route: 048
     Dates: start: 20170526, end: 20170526
  7. URITOS [Concomitant]
     Active Substance: IMIDAFENACIN
     Dosage: 0.1 MG, BID
     Dates: start: 20170601
  8. LANSOPRAZOLE. [Concomitant]
     Active Substance: LANSOPRAZOLE
     Dosage: 30 MG, OD
     Route: 048
  9. EPOPROSTENOL ACT [Suspect]
     Active Substance: EPOPROSTENOL
     Dosage: 28.9 NG/KG, PER MIN
     Route: 042
     Dates: start: 20170308, end: 20170321
  10. UPTRAVI [Suspect]
     Active Substance: SELEXIPAG
     Dosage: 0.4 MG, BID
     Route: 048
     Dates: start: 20170309, end: 20170406
  11. UPTRAVI [Suspect]
     Active Substance: SELEXIPAG
     Dosage: 0.2 MG, BID
     Route: 048
     Dates: start: 20170323, end: 20170406
  12. UPTRAVI [Suspect]
     Active Substance: SELEXIPAG
     Dosage: 0.8 MG, BID
     Route: 048
     Dates: start: 20170406, end: 20170524
  13. PREDONINE [Suspect]
     Active Substance: PREDNISOLONE
     Dosage: 20 MG, OD
     Route: 048
     Dates: start: 20170527, end: 20170605
  14. EPOPROSTENOL ACT [Suspect]
     Active Substance: EPOPROSTENOL
     Dosage: 21.43 NG/KG, PER MIN
     Route: 042
  15. PREDONINE [Suspect]
     Active Substance: PREDNISOLONE
     Dosage: 25 MG, OD
     Route: 048
     Dates: start: 20170606, end: 20170609
  16. PREDONINE [Suspect]
     Active Substance: PREDNISOLONE
     Dosage: 20 MG, OD
     Route: 048
     Dates: start: 20170610, end: 20170623
  17. OXYGEN. [Concomitant]
     Active Substance: OXYGEN
     Indication: PRODUCT USED FOR UNKNOWN INDICATION
  18. EPOPROSTENOL ACT [Suspect]
     Active Substance: EPOPROSTENOL
     Dosage: 0.26 NG/KG, PER MIN
     Route: 042
     Dates: start: 20150501
  19. EPOPROSTENOL ACT [Suspect]
     Active Substance: EPOPROSTENOL
     Dosage: 11.11 NG/KG, PER MIN
     Route: 042
  20. UPTRAVI [Suspect]
     Active Substance: SELEXIPAG
     Dosage: 0.2 MG, BID
     Route: 048
     Dates: start: 20170223, end: 20170308
  21. EBRANTIL [Concomitant]
     Active Substance: URAPIDIL
     Dosage: 30 MG, BID
     Route: 048
     Dates: start: 20170601
  22. LASIX [Concomitant]
     Active Substance: FUROSEMIDE
     Indication: RIGHT VENTRICULAR FAILURE
     Dosage: 20 MG, OD
     Route: 048
     Dates: start: 20170407, end: 20170421
  23. EPOPROSTENOL ACT [Suspect]
     Active Substance: EPOPROSTENOL
     Dosage: 6.35 NG/KG, PER MIN
     Route: 042
  24. EPOPROSTENOL ACT [Suspect]
     Active Substance: EPOPROSTENOL
     Dosage: 28.0 NG/KG, PER MIN
     Route: 042
     Dates: start: 20170322, end: 20170405
  25. ADEMPAS [Suspect]
     Active Substance: RIOCIGUAT
     Indication: PRODUCT USED FOR UNKNOWN INDICATION
     Dosage: 7.5 MG, QD
     Route: 048
     Dates: start: 20150427
  26. PREDONINE [Suspect]
     Active Substance: PREDNISOLONE
     Dosage: 15 MG, OD
     Route: 048
     Dates: start: 20170624, end: 20170712
  27. PREDONINE [Suspect]
     Active Substance: PREDNISOLONE
     Dosage: 10 MG, OD
     Route: 048
     Dates: start: 20170906, end: 20170920
  28. PREDONINE [Suspect]
     Active Substance: PREDNISOLONE
     Dosage: 20 MG, OD
     Route: 048
     Dates: start: 20170921, end: 20180321
  29. EBRANTIL [Concomitant]
     Active Substance: URAPIDIL
     Indication: DYSURIA
     Dosage: UNK
     Route: 048
     Dates: end: 20170525
  30. ARCRANE [Concomitant]
     Indication: PRODUCT USED FOR UNKNOWN INDICATION
     Dosage: 50 ML, OD
     Route: 048
     Dates: start: 20170606, end: 20170614
  31. EPOPROSTENOL ACT [Suspect]
     Active Substance: EPOPROSTENOL
     Indication: PULMONARY ARTERIAL HYPERTENSION
     Dosage: 0.52 NG/KG, PER MIN
     Route: 042
     Dates: end: 20170307
  32. EPOPROSTENOL ACT [Suspect]
     Active Substance: EPOPROSTENOL
     Dosage: 27 NG/KG, PER MIN
     Route: 042
  33. PREDONINE [Suspect]
     Active Substance: PREDNISOLONE
     Dosage: 7.5 MG, OD
     Route: 048
     Dates: start: 20180322
  34. URITOS [Concomitant]
     Active Substance: IMIDAFENACIN
     Indication: DYSURIA
     Dosage: UNK
     Route: 048
     Dates: end: 20170525
  35. LANSOPRAZOLE. [Concomitant]
     Active Substance: LANSOPRAZOLE
     Indication: PRODUCT USED FOR UNKNOWN INDICATION
     Dosage: 15 MG, OD
     Route: 048
     Dates: start: 20170525
  36. TRACLEER [Suspect]
     Active Substance: BOSENTAN
     Indication: PULMONARY ARTERIAL HYPERTENSION
     Dosage: 125 MG, BID
     Route: 048
     Dates: start: 20150418, end: 20150617
  37. EPOPROSTENOL ACT [Suspect]
     Active Substance: EPOPROSTENOL
     Dosage: 30.6 NG/KG, PER MIN
     Route: 042
  38. REBAMIPIDE [Suspect]
     Active Substance: REBAMIPIDE
     Indication: ABDOMINAL DISCOMFORT
     Dosage: 100 MG, QD
     Route: 048
     Dates: start: 20150528, end: 20150604
  39. GASTER [Suspect]
     Active Substance: FAMOTIDINE
     Indication: ABDOMINAL DISCOMFORT
     Dosage: UNK
     Route: 048
     Dates: start: 20150516, end: 20150527
  40. LAC-B [Concomitant]
     Active Substance: BIFIDOBACTERIUM SPP.
     Indication: PRODUCT USED FOR UNKNOWN INDICATION
     Route: 048
  41. OPSUMIT [Suspect]
     Active Substance: MACITENTAN
     Indication: PULMONARY ARTERIAL HYPERTENSION
     Dosage: 10 MG, QD
     Route: 048
     Dates: start: 20150618
  42. EPOPROSTENOL ACT [Suspect]
     Active Substance: EPOPROSTENOL
     Dosage: 30.5 NG/KG, PER MIN
     Route: 042
     Dates: end: 20170307
  43. EPOPROSTENOL ACT [Suspect]
     Active Substance: EPOPROSTENOL
     Dosage: 29.25 NG/KG, PER MIN
     Route: 042
  44. EPOPROSTENOL ACT [Suspect]
     Active Substance: EPOPROSTENOL
     Dosage: 13.76 NG/KG, PER MIN
     Route: 042
  45. UPTRAVI [Suspect]
     Active Substance: SELEXIPAG
     Indication: PULMONARY ARTERIAL HYPERTENSION
     Dosage: 0.2 MG, QD
     Route: 048
     Dates: start: 20170111, end: 20170222
  46. PREDONINE [Suspect]
     Active Substance: PREDNISOLONE
     Indication: THYROIDITIS
     Dosage: 5 MG, BID
     Route: 048
     Dates: start: 20170510, end: 20170525
  47. CEFZON [Concomitant]
     Active Substance: CEFDINIR
     Indication: PRODUCT USED FOR UNKNOWN INDICATION
     Dosage: 300 MG, OD
     Route: 048
     Dates: start: 20170501, end: 20170514
  48. CERNILTON N [Concomitant]
     Indication: PROSTATITIS
     Dosage: 6 DF, OD
     Route: 048
  49. ZOLPIDEM TARTRATE. [Concomitant]
     Active Substance: ZOLPIDEM TARTRATE
     Indication: PRODUCT USED FOR UNKNOWN INDICATION
     Route: 048

REACTIONS (29)
  - Blood pressure decreased [Recovered/Resolved]
  - Catheter site warmth [Recovered/Resolved]
  - Catheter site haemorrhage [Recovered/Resolved]
  - Alanine aminotransferase increased [Recovering/Resolving]
  - Nausea [Recovered/Resolved]
  - Cyst [Recovered/Resolved]
  - Acne [Recovering/Resolving]
  - Catheter site pain [Recovered/Resolved]
  - Seborrhoeic dermatitis [Recovered/Resolved]
  - Blood potassium decreased [Recovered/Resolved]
  - Catheter site erythema [Recovered/Resolved]
  - Catheter management [Unknown]
  - Blood thyroid stimulating hormone decreased [Recovered/Resolved]
  - Pain in jaw [Recovered/Resolved]
  - Faeces soft [Recovered/Resolved]
  - Device related infection [Recovered/Resolved]
  - Thyroiditis [Recovered/Resolved]
  - Tooth extraction [Recovered/Resolved]
  - Catheter site haematoma [Recovered/Resolved]
  - Aspartate aminotransferase increased [Recovered/Resolved]
  - Rash [Recovering/Resolving]
  - Headache [Recovering/Resolving]
  - Abdominal discomfort [Recovering/Resolving]
  - Hyperthyroidism [Recovered/Resolved]
  - Thyroxine free increased [Recovered/Resolved]
  - Heart rate increased [Recovered/Resolved]
  - Drug-induced liver injury [Recovered/Resolved]
  - Prostatitis [Recovered/Resolved]
  - Catheter site granuloma [Recovered/Resolved]

NARRATIVE: CASE EVENT DATE: 20150503
